FAERS Safety Report 7693714-1 (Version None)
Quarter: 2011Q3

REPORT INFORMATION
  Report Type: 
  Country: None (occurrence: None)
  Receive Date: 20110819
  Receipt Date: 20110809
  Transmission Date: 20111222
  Serious: Yes (Other)
  Sender: FDA-Public Use
  Company Number: CA-JNJFOC-20110801561

PATIENT
  Sex: Female
  Weight: 71.8 kg

DRUGS (8)
  1. REMICADE [Suspect]
     Indication: CROHN'S DISEASE
     Route: 042
     Dates: start: 20110603
  2. CLORAZEPATE DIPOTASSIUM [Concomitant]
     Route: 065
  3. IMURAN [Concomitant]
     Route: 065
  4. SYNTHROID [Concomitant]
     Route: 065
  5. CLONAZEPAM [Concomitant]
  6. HYDROCORTISONE [Concomitant]
     Indication: PREMEDICATION
     Route: 042
  7. CODEINE SULFATE [Concomitant]
     Route: 065
  8. FOSAMAX [Concomitant]
     Route: 065

REACTIONS (3)
  - FREQUENT BOWEL MOVEMENTS [None]
  - ELECTROLYTE IMBALANCE [None]
  - ABDOMINAL INFECTION [None]
